FAERS Safety Report 5738982-8 (Version None)
Quarter: 2008Q2

REPORT INFORMATION
  Report Type: 
  Country: None (occurrence: None)
  Receive Date: 20080515
  Receipt Date: 20080502
  Transmission Date: 20081010
  Serious: Yes (Other)
  Sender: FDA-Public Use
  Company Number: AU-GENENTECH-260708

PATIENT
  Sex: Female
  Weight: 65 kg

DRUGS (1)
  1. AVASTIN [Suspect]
     Indication: RETINAL VASCULAR DISORDER
     Route: 042

REACTIONS (2)
  - HYPERTHYROIDISM [None]
  - THYROIDITIS [None]
